FAERS Safety Report 17997414 (Version 1)
Quarter: 2020Q3

REPORT INFORMATION
  Report Type: Report from Study
  Country: None (occurrence: NL)
  Receive Date: 20200709
  Receipt Date: 20200709
  Transmission Date: 20201103
  Serious: Yes (Death)
  Sender: FDA-Public Use
  Company Number: NL-ABBVIE-20K-114-3474593-00

PATIENT
  Sex: Female

DRUGS (6)
  1. COLOFORT [Concomitant]
     Indication: ABNORMAL FAECES
  2. MICROLAX [Concomitant]
     Indication: PRODUCT USED FOR UNKNOWN INDICATION
  3. MORPHINE [Concomitant]
     Active Substance: MORPHINE
     Indication: PRODUCT USED FOR UNKNOWN INDICATION
  4. CLOZAPINE. [Concomitant]
     Active Substance: CLOZAPINE
     Indication: HALLUCINATION
  5. CLOZAPINE. [Concomitant]
     Active Substance: CLOZAPINE
     Indication: DELUSION
     Route: 048
     Dates: start: 20180301
  6. DUODOPA [Suspect]
     Active Substance: CARBIDOPA\LEVODOPA
     Indication: PARKINSON^S DISEASE
     Dosage: MD: 2.0, CD: 4.0, ED: 2.8
     Route: 050
     Dates: start: 20150206

REACTIONS (2)
  - Parkinson^s disease [Fatal]
  - General physical health deterioration [Not Recovered/Not Resolved]
